FAERS Safety Report 8604987-2 (Version None)
Quarter: 2012Q3

REPORT INFORMATION
  Report Type: 
  Country: None (occurrence: None)
  Receive Date: 20120820
  Receipt Date: 20120816
  Transmission Date: 20120928
  Serious: Yes (Disabling)
  Sender: FDA-Public Use
  Company Number: US-PFIZER INC-2012201279

PATIENT
  Age: 55 Year
  Sex: Female
  Weight: 126.98 kg

DRUGS (2)
  1. LOTREL [Concomitant]
     Indication: HYPERTENSION
     Dosage: UNK
  2. ZOLOFT [Suspect]
     Indication: DEPRESSION
     Dosage: UNK
     Route: 048

REACTIONS (5)
  - DYSSTASIA [None]
  - BACK DISORDER [None]
  - ARTHROPATHY [None]
  - FIBROMYALGIA [None]
  - ARTHRITIS [None]
